FAERS Safety Report 4514364-1 (Version None)
Quarter: 2004Q4

REPORT INFORMATION
  Report Type: 
  Country: None (occurrence: None)
  Receive Date: 20041130
  Receipt Date: 20041110
  Transmission Date: 20050328
  Serious: Yes (Life-Threatening, Hospitalization, Other)
  Sender: FDA-Public Use
  Company Number: BE-MERCK-0411BEL00019

PATIENT
  Age: 79 Year
  Sex: Female
  Weight: 70 kg

DRUGS (12)
  1. VIOXX [Suspect]
     Indication: LOCALISED OSTEOARTHRITIS
     Route: 048
     Dates: start: 20010816, end: 20041014
  2. ALTHIAZIDE AND SPIRONOLACTONE [Concomitant]
     Route: 048
  3. ETORICOXIB [Concomitant]
     Route: 048
     Dates: start: 20040101
  4. CIFENLINE SUCCINATE [Concomitant]
     Route: 048
  5. GLIQUIDONE [Concomitant]
     Indication: DIABETES MELLITUS NON-INSULIN-DEPENDENT
     Route: 048
  6. HYDRALAZINE [Concomitant]
     Route: 048
  7. LOSARTAN POTASSIUM [Concomitant]
     Indication: HYPERTENSION
     Route: 048
  8. LOPERAMIDE HYDROCHLORIDE [Concomitant]
     Indication: DIARRHOEA
     Route: 048
  9. MESALAMINE [Concomitant]
     Route: 048
  10. FLUTICASONE PROPIONATE AND SALMETEROL XINAFOATE [Concomitant]
     Indication: ASTHMA
     Route: 055
  11. SINGULAIR [Concomitant]
     Indication: ASTHMA
     Route: 048
  12. ALBUTEROL [Concomitant]
     Indication: ASTHMA
     Route: 055

REACTIONS (1)
  - MYOCARDIAL INFARCTION [None]
